FAERS Safety Report 8767063 (Version 2)
Quarter: 2012Q4

REPORT INFORMATION
  Report Type: 
  Country: AU (occurrence: AU)
  Receive Date: 20120828
  Receipt Date: 20121009
  Transmission Date: 20130627
  Serious: Yes (Death)
  Sender: FDA-Public Use
  Company Number: AU-ELI_LILLY_AND_COMPANY-AU201208007741

PATIENT
  Age: 35 Year
  Sex: Male

DRUGS (2)
  1. STRATTERA [Suspect]
     Indication: ATTENTION DEFICIT/HYPERACTIVITY DISORDER
     Dosage: 18 mg, qd
     Route: 048
     Dates: start: 20120818
  2. STRATTERA [Suspect]
     Dosage: 25 mg, qd
     Route: 048

REACTIONS (2)
  - Completed suicide [Fatal]
  - Carbon monoxide poisoning [Fatal]
